FAERS Safety Report 25665161 (Version 1)
Quarter: 2025Q3

REPORT INFORMATION
  Report Type: Spontaneous
  Country: US (occurrence: None)
  Receive Date: 20250809
  Receipt Date: 20250809
  Transmission Date: 20251021
  Serious: Yes (Other)
  Sender: FDA-CTU
  Company Number: None

PATIENT
  Age: 63 Year

DRUGS (2)
  1. SUBLOCADE [Suspect]
     Active Substance: BUPRENORPHINE
     Dates: start: 20250718
  2. EPINEPHRINE\LIDOCAINE [Suspect]
     Active Substance: EPINEPHRINE\LIDOCAINE
     Dates: start: 20250718

REACTIONS (1)
  - Administration site wound [None]

NARRATIVE: CASE EVENT DATE: 20250719
